FAERS Safety Report 21556711 (Version 1)
Quarter: 2022Q4

REPORT INFORMATION
  Report Type: Spontaneous
  Country: CN (occurrence: CN)
  Receive Date: 20221104
  Receipt Date: 20221104
  Transmission Date: 20230113
  Serious: Yes (Disabling, Other)
  Sender: FDA-Public Use
  Company Number: None

PATIENT
  Age: 58 Year
  Sex: Male
  Weight: 80 kg

DRUGS (6)
  1. CYCLOPHOSPHAMIDE [Suspect]
     Active Substance: CYCLOPHOSPHAMIDE
     Indication: Neoplasm
     Dosage: 1 G, QD, DILUTED WITH 0.9% NS 100ML
     Route: 041
     Dates: start: 20220422, end: 20220422
  2. SODIUM CHLORIDE [Suspect]
     Active Substance: SODIUM CHLORIDE
     Indication: Medication dilution
     Dosage: 100 ML, QD, USED TO DILUTE CYCLOPHOSPHAMIDE 1 G
     Route: 041
     Dates: start: 20220422, end: 20220422
  3. SODIUM CHLORIDE [Suspect]
     Active Substance: SODIUM CHLORIDE
     Dosage: 100 ML, QD, USED TO DILUTE EPIRUBICIN HYDROCHLORIDE 100 MG
     Route: 041
     Dates: start: 20220422, end: 20220422
  4. SODIUM CHLORIDE [Suspect]
     Active Substance: SODIUM CHLORIDE
     Dosage: 500 ML, QD, USED TO DILUTE CISPLATIN 40 MG
     Route: 041
     Dates: start: 20220422, end: 20220422
  5. EPIRUBICIN HYDROCHLORIDE [Suspect]
     Active Substance: EPIRUBICIN HYDROCHLORIDE
     Indication: Neoplasm
     Dosage: 100 MG, QD, DILUTED WITH 0.9% NS 100ML
     Route: 041
     Dates: start: 20220422, end: 20220422
  6. CISPLATIN [Suspect]
     Active Substance: CISPLATIN
     Indication: Neoplasm
     Dosage: 40 MG, QD, DILUTED WITH 0.9% NS 500ML
     Route: 041
     Dates: start: 20220422, end: 20220422

REACTIONS (1)
  - Myelosuppression [Recovered/Resolved]

NARRATIVE: CASE EVENT DATE: 20220504
